FAERS Safety Report 23401533 (Version 7)
Quarter: 2025Q4

REPORT INFORMATION
  Report Type: Spontaneous
  Country: US (occurrence: US)
  Receive Date: 20240115
  Receipt Date: 20251031
  Transmission Date: 20260118
  Serious: No
  Sender: PFIZER
  Company Number: US-PFIZER INC-PV202300066874

PATIENT
  Age: 70 Year
  Sex: Female
  Weight: 65.76 kg

DRUGS (10)
  1. IBRANCE [Suspect]
     Active Substance: PALBOCICLIB
     Indication: Breast cancer female
     Dosage: 100 MG, CYCLIC (ONCE DAILY, WITH OR WITHOUT FOOD, FOR 21-DAYS FOLLOWED BY 7 DAYS OFF)
     Route: 048
     Dates: start: 20190920
  2. IBRANCE [Suspect]
     Active Substance: PALBOCICLIB
     Dosage: 100 MG, CYCLIC (TAKE ONE TABLET DAILY 1-21 DAYS, 7 DAYS OFF)
  3. IBRANCE [Suspect]
     Active Substance: PALBOCICLIB
     Dosage: 100 MG, CYCLIC (ONCE DAILY, WITH OR WITHOUT FOOD, FOR 21-DAYS FOLLOWED BY 7 DAYS OFF TREATMENT)
     Route: 048
  4. IBRANCE [Suspect]
     Active Substance: PALBOCICLIB
     Dosage: 100 MG, CYCLIC (100 MG 3X7 UD TAB 21)
     Route: 048
  5. IBRANCE [Suspect]
     Active Substance: PALBOCICLIB
     Dosage: 100 MG
     Route: 048
  6. LETROZOLE [Concomitant]
     Active Substance: LETROZOLE
     Dosage: 1 DF, 1X/DAY (ONE A DAY)
     Dates: start: 20190920
  7. DIETARY SUPPLEMENT [Concomitant]
     Active Substance: DIETARY SUPPLEMENT
     Dosage: UNK (ALWAYS HAVING)
  8. POTASSIUM CITRATE [Concomitant]
     Active Substance: POTASSIUM CITRATE
     Dosage: UNK (ALWAYS HAVE)
  9. METFORMIN [Concomitant]
     Active Substance: METFORMIN HYDROCHLORIDE
     Dosage: 2 DF (2 TABLETS, 2 DAY RELEASE)
  10. PCP [CODEINE PHOSPHATE;PHENAZONE;PHENOBARBITAL] [Concomitant]
     Dosage: UNK

REACTIONS (2)
  - Headache [Unknown]
  - Weight decreased [Unknown]

NARRATIVE: CASE EVENT DATE: 20211118
